FAERS Safety Report 7908610-1 (Version None)
Quarter: 2011Q4

REPORT INFORMATION
  Report Type: 
  Country: None (occurrence: None)
  Receive Date: 20111111
  Receipt Date: 20111109
  Transmission Date: 20120403
  Serious: Yes (Other)
  Sender: FDA-Public Use
  Company Number: US-PFIZER INC-2011271809

PATIENT
  Sex: Female
  Weight: 68.03 kg

DRUGS (3)
  1. BENAZEPRIL [Concomitant]
     Dosage: 10MG, UNK
  2. METOPROLOL [Concomitant]
     Dosage: 25MG, UNK
  3. LIPITOR [Suspect]
     Indication: BLOOD CHOLESTEROL INCREASED
     Dosage: 10 MG, 1X/DAY
     Dates: end: 20100101

REACTIONS (2)
  - CROHN'S DISEASE [None]
  - BLOOD CHOLESTEROL ABNORMAL [None]
